FAERS Safety Report 26104277 (Version 1)
Quarter: 2025Q4

REPORT INFORMATION
  Report Type: Spontaneous
  Country: EU (occurrence: EU)
  Receive Date: 20251130
  Receipt Date: 20251130
  Transmission Date: 20260117
  Serious: Yes (Other)
  Sender: ALEXION PHARMACEUTICALS
  Company Number: EU-AstraZeneca-CH-01000083A

PATIENT
  Sex: Female

DRUGS (1)
  1. DAPAGLIFLOZIN [Suspect]
     Active Substance: DAPAGLIFLOZIN
     Route: 065

REACTIONS (3)
  - Glomerular filtration rate decreased [Unknown]
  - IgA nephropathy [Unknown]
  - Tubulointerstitial nephritis [Unknown]
